FAERS Safety Report 8095015-9 (Version None)
Quarter: 2012Q1

REPORT INFORMATION
  Report Type: 
  Country: None (occurrence: None)
  Receive Date: 20120131
  Receipt Date: 20120131
  Transmission Date: 20120608
  Serious: Yes (Other)
  Sender: FDA-Public Use
  Company Number: None

PATIENT
  Age: 81 Year
  Sex: Female
  Weight: 76 kg

DRUGS (15)
  1. ACETAMINOPHEN/HYDROCODONE 325/5 [Concomitant]
     Route: 048
  2. LEVOFLOXACIN [Concomitant]
     Route: 048
  3. CALCIUM + VITAMIN D 2 [Concomitant]
  4. LISINOPRIL [Concomitant]
     Route: 048
  5. ACETAMINOPHEN/OXYCODONE 325/5 [Concomitant]
  6. THIORIDAZINE HCL [Concomitant]
     Route: 048
  7. ALPRAZOLAM [Concomitant]
     Route: 048
  8. FENTANYL-100 [Suspect]
     Indication: PAIN
     Dosage: 12 MCG/HR
     Route: 061
  9. TOLTERODINE TARTRATE [Concomitant]
     Route: 048
  10. THIORIDAZINE HCL [Concomitant]
     Route: 048
  11. ENOXAPARIN [Concomitant]
     Route: 058
  12. CITALOPRAM [Concomitant]
     Route: 048
  13. FLUTICASONE/SALMETEROL 250/50 [Concomitant]
  14. LIDOCAINE [Concomitant]
     Route: 061
  15. SENNA [Concomitant]

REACTIONS (2)
  - RESPIRATORY DEPRESSION [None]
  - MENTAL STATUS CHANGES [None]
